FAERS Safety Report 5504818-3 (Version None)
Quarter: 2007Q4

REPORT INFORMATION
  Report Type: 
  Country: None (occurrence: None)
  Receive Date: 20071031
  Receipt Date: 20071031
  Transmission Date: 20080405
  Serious: Yes (Life-Threatening, Other)
  Sender: FDA-Public Use
  Company Number: None

PATIENT
  Age: 39 Year
  Sex: Female
  Weight: 95.2554 kg

DRUGS (1)
  1. PROVENTIL-HFA [Suspect]
     Indication: ASTHMA
     Dosage: 2 PUFFS 4 - 6 HOURS INHAL
     Route: 055
     Dates: start: 20071010, end: 20071030

REACTIONS (2)
  - DRUG EFFECT DECREASED [None]
  - LOSS OF CONSCIOUSNESS [None]
